FAERS Safety Report 8193462 (Version 3)
Quarter: 2013Q2

REPORT INFORMATION
  Report Type: Report from Study
  Country: ES (occurrence: ES)
  Receive Date: 20111021
  Receipt Date: 20130404
  Transmission Date: 20140414
  Serious: Yes (Hospitalization)
  Sender: FDA-Public Use
  Company Number: ES-PFIZER INC-2011246334

PATIENT
  Age: 54 Year
  Sex: Male
  Weight: 65 kg

DRUGS (9)
  1. IRINOTECAN HCL [Suspect]
     Indication: COLORECTAL CANCER METASTATIC
     Dosage: 180 MG/M2, ON DAY 1 EVERY 14 DAYS
     Route: 042
     Dates: start: 20110706, end: 20110928
  2. BLINDED THERAPY [Suspect]
     Indication: COLORECTAL CANCER METASTATIC
     Dosage: ON DAY 1 EVERY 14 DAYS
     Route: 042
     Dates: start: 20110706, end: 20110928
  3. FLUOROURACIL [Suspect]
     Indication: COLORECTAL CANCER METASTATIC
     Dosage: 400 MG/M2, ON DAY 1 EVERY 14 DAYS
     Route: 040
     Dates: start: 20110706, end: 20110928
  4. FLUOROURACIL [Suspect]
     Dosage: 2400 MG/M2, ON DAYS 1-2 EVERY 14 DAYS
     Route: 041
     Dates: start: 20110706, end: 20110928
  5. FOLINIC ACID [Suspect]
     Indication: COLORECTAL CANCER METASTATIC
     Dosage: 400 MG/M2, ON DAY ONE EVERY 14 DAYS
     Route: 042
     Dates: start: 20110706, end: 20110928
  6. TRAMADOL [Concomitant]
     Indication: BACK PAIN
     Dosage: UNK
     Dates: start: 20110927
  7. ACETAMINOPHEN [Concomitant]
     Indication: BACK PAIN
     Dosage: UNK
     Dates: start: 20110927
  8. OMEPRAZOLE [Concomitant]
     Indication: PROPHYLAXIS
     Dosage: UNK
     Dates: start: 20110927
  9. IBUPROFEN [Concomitant]

REACTIONS (1)
  - Peritonitis [Recovered/Resolved]
